FAERS Safety Report 4387008-X (Version None)
Quarter: 2004Q2

REPORT INFORMATION
  Report Type: 
  Country: None (occurrence: None)
  Receive Date: 20040630
  Receipt Date: 20021126
  Transmission Date: 20050107
  Serious: No
  Sender: FDA-Public Use
  Company Number: US-GLAXOSMITHKLINE-A0387579A

PATIENT
  Age: 60 Year
  Sex: Female

DRUGS (7)
  1. ADVAIR HFA [Suspect]
     Indication: ASTHMA
     Dosage: 1PUFF TWICE PER DAY
     Route: 055
     Dates: start: 20021001
  2. AZMACORT [Concomitant]
  3. LOZOL [Concomitant]
  4. ZYRTEC [Concomitant]
  5. XANAX [Concomitant]
  6. ONE A DAY VITAMIN [Concomitant]
  7. IBUPROFEN [Concomitant]

REACTIONS (2)
  - DYSPHONIA [None]
  - HOARSENESS [None]
